FAERS Safety Report 6579792-1 (Version None)
Quarter: 2010Q1

REPORT INFORMATION
  Report Type: 
  Country: None (occurrence: None)
  Receive Date: 20100212
  Receipt Date: 20100202
  Transmission Date: 20100710
  Serious: Yes (Hospitalization)
  Sender: FDA-Public Use
  Company Number: US-ROCHE-683994

PATIENT
  Sex: Female
  Weight: 44.1 kg

DRUGS (9)
  1. BEVACIZUMAB [Suspect]
     Indication: METASTATIC GASTRIC CANCER
     Route: 042
     Dates: start: 20090420, end: 20091214
  2. CAPECITABINE [Suspect]
     Indication: METASTATIC GASTRIC CANCER
     Dosage: FREQUENCY: REPORTED DAY.DOSE: 2500 MG.
     Route: 048
     Dates: start: 20090420, end: 20091227
  3. OXALIPLATIN [Suspect]
     Indication: METASTATIC GASTRIC CANCER
     Dosage: DOSE: 191 MG.
     Route: 042
     Dates: start: 20090420, end: 20091214
  4. OMEPRAZOLE [Concomitant]
  5. MARINOL [Concomitant]
  6. LASIX [Concomitant]
  7. DEXAMETHASONE [Concomitant]
  8. COMPAZINE [Concomitant]
  9. POTASSIUM CHLORIDE [Concomitant]

REACTIONS (1)
  - CONFUSIONAL STATE [None]
